FAERS Safety Report 23160324 (Version 4)
Quarter: 2023Q4

REPORT INFORMATION
  Report Type: Spontaneous
  Country: CN (occurrence: None)
  Receive Date: 20231108
  Receipt Date: 20231201
  Transmission Date: 20240109
  Serious: Yes (Hospitalization, Other)
  Sender: FDA-Public Use
  Company Number: 2023A243307

PATIENT
  Age: 60 Year
  Sex: Male

DRUGS (1)
  1. BREZTRI [Suspect]
     Active Substance: BUDESONIDE\FORMOTEROL\GLYCOPYRROLATE
     Indication: Chronic obstructive pulmonary disease
     Dosage: 160 UG/7.2 UG/4.8 UG
     Route: 055

REACTIONS (7)
  - Malaise [Recovered/Resolved]
  - Condition aggravated [Recovered/Resolved]
  - Dyspnoea [Recovered/Resolved]
  - Device issue [Recovered/Resolved]
  - Device malfunction [Recovered/Resolved]
  - Device delivery system issue [Recovered/Resolved]
  - Bite [Unknown]
